FAERS Safety Report 10886208 (Version 3)
Quarter: 2015Q1

REPORT INFORMATION
  Report Type: Spontaneous
  Country: FR (occurrence: FR)
  Receive Date: 20150304
  Receipt Date: 20150320
  Transmission Date: 20150721
  Serious: Yes (Death, Life-Threatening)
  Sender: FDA-Public Use
  Company Number: FR-OTSUKA-US-2015-11073

PATIENT

DRUGS (12)
  1. UROMITEXAN [Suspect]
     Active Substance: MESNA
     Indication: PRODUCT USED FOR UNKNOWN INDICATION
     Dosage: 60 MG/KG, QD (EQUIDODE CYCLOPHOSPHAMIDE IV)
     Route: 042
     Dates: start: 20150208, end: 20150209
  2. CALCIDOSE [Concomitant]
     Active Substance: CALCIUM CARBONATE
     Indication: PRODUCT USED FOR UNKNOWN INDICATION
     Dosage: 500 MG MILLIGRAM(S), QD
     Route: 048
     Dates: end: 20150207
  3. ESOMEPRAZOLE [Concomitant]
     Active Substance: ESOMEPRAZOLE
     Indication: PRODUCT USED FOR UNKNOWN INDICATION
     Dosage: 40 MG MILLIGRAM(S), QD
     Route: 042
     Dates: end: 20150214
  4. GLUCIDION [Concomitant]
     Active Substance: GLUCOSE, LIQUID\POTASSIUM CHLORIDE\SODIUM CHLORIDE
     Indication: PRODUCT USED FOR UNKNOWN INDICATION
     Dosage: UNK
     Route: 042
     Dates: start: 20150201, end: 20150212
  5. TEPADINA [Suspect]
     Active Substance: THIOTEPA
     Indication: STEM CELL TRANSPLANT
     Dosage: 250 MG/M2, DAILY DOSE
     Route: 042
     Dates: start: 20150202, end: 20150204
  6. ONDANSETRON ACCORD [Concomitant]
     Active Substance: ONDANSETRON
     Indication: PRODUCT USED FOR UNKNOWN INDICATION
     Dosage: 8 MG MILLIGRAM(S), TID
     Route: 042
     Dates: start: 20150203, end: 20150208
  7. ZELITREX [Concomitant]
     Active Substance: VALACYCLOVIR HYDROCHLORIDE
     Indication: PRODUCT USED FOR UNKNOWN INDICATION
     Dosage: 500 MG MILLIGRAM(S), DAILY DOSE
     Route: 048
     Dates: start: 20150205, end: 20150207
  8. AERIUS [Concomitant]
     Active Substance: DESLORATADINE
     Indication: PRODUCT USED FOR UNKNOWN INDICATION
     Dosage: 5 MG MILLIGRAM(S), QD
     Route: 048
     Dates: end: 20150214
  9. EMEND [Concomitant]
     Active Substance: APREPITANT
     Indication: PRODUCT USED FOR UNKNOWN INDICATION
     Dosage: 1 DF DOSAGE FORM, QD
     Route: 048
     Dates: start: 20150202, end: 20150211
  10. RIVOTRIL [Concomitant]
     Active Substance: CLONAZEPAM
     Indication: PRODUCT USED FOR UNKNOWN INDICATION
     Dosage: 2 MG MILLIGRAM(S), QD
     Route: 048
     Dates: start: 20150205, end: 20150207
  11. BUSULFEX [Suspect]
     Active Substance: BUSULFAN
     Indication: STEM CELL TRANSPLANT
     Dosage: 0.8 MG/KG, 1 DOSE EVERY 6 HOURS X10 (450 MG/JOUR)
     Route: 042
     Dates: start: 20150202, end: 20150204
  12. ENDOXAN [Suspect]
     Active Substance: CYCLOPHOSPHAMIDE
     Indication: STEM CELL TRANSPLANT
     Dosage: 60 MG/KG, DAILY DOSE
     Route: 042
     Dates: start: 20150208, end: 20150209

REACTIONS (5)
  - Candida sepsis [Fatal]
  - Dermatitis bullous [Unknown]
  - Mucosal inflammation [Unknown]
  - Septic shock [Fatal]
  - Multi-organ failure [Fatal]
